FAERS Safety Report 9745439 (Version 1)
Quarter: 2013Q4

REPORT INFORMATION
  Report Type: Spontaneous
  Country: US (occurrence: US)
  Receive Date: 20131211
  Receipt Date: 20131211
  Transmission Date: 20140711
  Serious: No
  Sender: FDA-Public Use
  Company Number: US-009507513-1312USA002348

PATIENT
  Age: 52 Year
  Sex: Male

DRUGS (4)
  1. LIPTRUZET [Suspect]
     Indication: BLOOD CHOLESTEROL INCREASED
     Dosage: 1 DF, QD
     Route: 048
     Dates: start: 20131016
  2. BYSTOLIC [Concomitant]
  3. COUMADIN [Concomitant]
  4. LISINOPRIL [Concomitant]

REACTIONS (1)
  - International normalised ratio abnormal [Unknown]
